FAERS Safety Report 25184096 (Version 1)
Quarter: 2025Q2

REPORT INFORMATION
  Report Type: Spontaneous
  Country: US (occurrence: None)
  Receive Date: 20250409
  Receipt Date: 20250409
  Transmission Date: 20250716
  Serious: Yes (Hospitalization)
  Sender: FDA-CTU
  Company Number: None

PATIENT
  Age: 61 Year
  Sex: Male
  Weight: 108 kg

DRUGS (3)
  1. VENLAFAXINE HCL [Suspect]
     Active Substance: VENLAFAXINE HYDROCHLORIDE
     Indication: Depression
     Dosage: FREQUENCY : TWICE A DAY;?
     Route: 048
     Dates: start: 20190927, end: 20241005
  2. COVID-19 VACCINE NOS [Suspect]
     Active Substance: COVID-19 VACCINE
  3. INFLUENZA VIRUS VACCINE [Suspect]
     Active Substance: INFLUENZA VIRUS VACCINE

REACTIONS (5)
  - Hyponatraemia [None]
  - Vomiting [None]
  - Headache [None]
  - Vomiting [None]
  - Blood glucose increased [None]

NARRATIVE: CASE EVENT DATE: 20241005
